FAERS Safety Report 8259555-1 (Version None)
Quarter: 2012Q2

REPORT INFORMATION
  Report Type: 
  Country: None (occurrence: None)
  Receive Date: 20120404
  Receipt Date: 20120328
  Transmission Date: 20120825
  Serious: Yes (Other)
  Sender: FDA-Public Use
  Company Number: PHHY2012DE027518

PATIENT
  Sex: Female
  Weight: 78 kg

DRUGS (4)
  1. ORAL ANTIDIABETICS [Concomitant]
     Indication: DIABETES MELLITUS
  2. ACE INHIBITORS [Concomitant]
  3. RASILEZ HCT [Suspect]
     Indication: HYPERTENSION
     Dosage: 1 DF, QD
     Route: 048
     Dates: start: 20090325
  4. INSULIN [Concomitant]
     Indication: DIABETES MELLITUS

REACTIONS (6)
  - ANIMAL BITE [None]
  - ACUTE STRESS DISORDER [None]
  - CONTUSION [None]
  - INJURY [None]
  - ELECTROCARDIOGRAM QT PROLONGED [None]
  - EXCORIATION [None]
